FAERS Safety Report 10576335 (Version 4)
Quarter: 2015Q2

REPORT INFORMATION
  Report Type: Report from Study
  Country: US (occurrence: US)
  Receive Date: 20141111
  Receipt Date: 20150624
  Transmission Date: 20150821
  Serious: Yes (Disabling, Other)
  Sender: FDA-Public Use
  Company Number: US-SA-2013SA102499

PATIENT
  Age: 70 Year
  Sex: Male

DRUGS (1)
  1. AUBAGIO [Suspect]
     Active Substance: TERIFLUNOMIDE
     Indication: MULTIPLE SCLEROSIS
     Route: 048
     Dates: start: 20121214

REACTIONS (7)
  - Trigeminal neuralgia [Recovering/Resolving]
  - General physical health deterioration [Not Recovered/Not Resolved]
  - Joint swelling [Unknown]
  - Diarrhoea [Unknown]
  - Peripheral swelling [Unknown]
  - Flatulence [Unknown]
  - Cognitive disorder [Not Recovered/Not Resolved]
